FAERS Safety Report 11581964 (Version 1)
Quarter: 2015Q4

REPORT INFORMATION
  Report Type: Spontaneous
  Country: US (occurrence: US)
  Receive Date: 20151001
  Receipt Date: 20151001
  Transmission Date: 20160304
  Serious: No
  Sender: FDA-Public Use
  Company Number: US-ROCHE-681690

PATIENT
  Age: 54 Year
  Sex: Female

DRUGS (2)
  1. PEGASYS [Suspect]
     Active Substance: PEGINTERFERON ALFA-2A
     Indication: HEPATITIS C
     Dosage: FORM: PRE-FILLED SYRINGE
     Route: 065
  2. RIBAVIRIN. [Suspect]
     Active Substance: RIBAVIRIN
     Indication: HEPATITIS C
     Dosage: IN DIVIDED DOSES
     Route: 065

REACTIONS (12)
  - Malaise [Recovering/Resolving]
  - Pyrexia [Unknown]
  - Abnormal sensation in eye [Unknown]
  - Nausea [Not Recovered/Not Resolved]
  - Increased upper airway secretion [Unknown]
  - Rhinorrhoea [Unknown]
  - Influenza like illness [Unknown]
  - Rash macular [Not Recovered/Not Resolved]
  - Cough [Unknown]
  - Dry skin [Not Recovered/Not Resolved]
  - Upper-airway cough syndrome [Not Recovered/Not Resolved]
  - Feeling abnormal [Unknown]

NARRATIVE: CASE EVENT DATE: 20100122
